FAERS Safety Report 9481936 (Version 1)
Quarter: 2013Q3

REPORT INFORMATION
  Report Type: Spontaneous
  Country: US (occurrence: US)
  Receive Date: 20130828
  Receipt Date: 20130828
  Transmission Date: 20140515
  Serious: Yes (Hospitalization, Other)
  Sender: FDA-Public Use
  Company Number: US-SHIRE-ALL1-2013-05785

PATIENT
  Age: 61 Year
  Sex: Male
  Weight: 128.4 kg

DRUGS (39)
  1. 426 (MIDODRINE) [Suspect]
     Indication: HYPOTENSION
     Dosage: 5 MG, 1X/DAY:QD
     Route: 048
     Dates: start: 201210
  2. PREDNISONE [Suspect]
     Indication: ASTHMA
     Dosage: 10 MG, 1X/DAY:QD
     Route: 048
     Dates: start: 20120628
  3. PREDNISONE [Suspect]
     Indication: CHRONIC OBSTRUCTIVE PULMONARY DISEASE
  4. AMIODARONE [Suspect]
     Indication: VENTRICULAR FIBRILLATION
     Dosage: 220 MG, 1X/DAY:QD
     Route: 048
     Dates: start: 201110
  5. MORPHINE SULFATE [Suspect]
     Indication: BACK PAIN
     Dosage: 60 MG, 3X/DAY:TID
     Route: 048
     Dates: start: 20121115
  6. OXYCODONE HYDROCHLORIDE [Suspect]
     Indication: NEUROPATHY PERIPHERAL
     Dosage: 10 MG, 4X/DAY:QID (Q6H)
     Route: 048
     Dates: start: 201209
  7. NEURONTIN [Suspect]
     Indication: NEUROPATHY PERIPHERAL
     Dosage: 100 MG, 3X/DAY:TID
     Route: 048
     Dates: start: 201209
  8. ZAROXOLYN [Suspect]
     Indication: CARDIAC FAILURE CONGESTIVE
     Dosage: 5 MG, QOD (EVERY OTHER DAY)
     Route: 048
     Dates: end: 201301
  9. COREG [Suspect]
     Indication: HYPERTENSION
     Dosage: 6.25 MG, 2X/DAY:BID
     Route: 048
     Dates: start: 20121114
  10. HYDROCODONE [Suspect]
     Indication: BACK PAIN
     Dosage: 10 MG, OTHER (Q3H)
     Route: 048
     Dates: start: 1992
  11. CYMBALTA [Suspect]
     Indication: DEPRESSION
     Dosage: 60 MG, 2X/DAY:BID
     Route: 048
     Dates: start: 2007
  12. TAMSULOSIN [Concomitant]
     Indication: URINARY RETENTION
     Dosage: UNK, UNKNOWN
     Route: 065
     Dates: start: 201208
  13. ROFLUMILAST [Concomitant]
     Indication: ASTHMA
     Dosage: UNK UNK, UNKNOWN
     Route: 065
     Dates: start: 2011
  14. ROFLUMILAST [Concomitant]
     Indication: CHRONIC OBSTRUCTIVE PULMONARY DISEASE
  15. NIZORAL [Concomitant]
     Indication: PRURITUS
     Dosage: UNK, UNKNOWN
     Route: 065
     Dates: start: 2005
  16. FUROSEMIDE [Concomitant]
     Indication: CARDIAC FAILURE CONGESTIVE
     Dosage: UNK, UNKNOWN
     Route: 065
     Dates: start: 20121207
  17. DULERA [Concomitant]
     Indication: ASTHMA
     Dosage: UNK, UNKNOWN
     Route: 065
     Dates: start: 20120115
  18. SPIRIVA [Concomitant]
     Indication: ASTHMA
     Dosage: UNK, UNKNOWN
     Route: 065
     Dates: start: 20120115
  19. LISINOPRIL [Concomitant]
     Indication: HYPERTENSION
     Dosage: UNK, UNKNOWN
     Route: 065
     Dates: start: 20121114
  20. LIDOCAINE [Concomitant]
     Indication: NEUROPATHY PERIPHERAL
     Dosage: UNK, UNKNOWN
     Route: 065
     Dates: start: 2004
  21. LORATADINE [Concomitant]
     Indication: SEASONAL ALLERGY
     Dosage: UNK, UNKNOWN
     Route: 065
     Dates: start: 1992
  22. PLAVIX [Concomitant]
     Indication: CARDIOVASCULAR EVENT PROPHYLAXIS
     Dosage: UNK, UNKNOWN
     Route: 065
     Dates: start: 1999
  23. SPIRONOLACTONE [Concomitant]
     Indication: CARDIAC FAILURE CONGESTIVE
     Dosage: UNK, UNKNOWN
     Route: 065
     Dates: start: 1999
  24. FLONASE [Concomitant]
     Indication: SEASONAL ALLERGY
     Dosage: UNK, UNKNOWN
     Route: 065
     Dates: start: 2003
  25. LEVOTHYROXINE [Concomitant]
     Indication: HYPOTHYROIDISM
     Dosage: UNK, UNKNOWN
     Route: 065
     Dates: start: 20121219
  26. INSULIN [Concomitant]
     Indication: TYPE 2 DIABETES MELLITUS
     Dosage: UNK, UNKNOWN
     Route: 065
     Dates: start: 201206
  27. LIPITOR [Concomitant]
     Indication: DYSLIPIDAEMIA
     Dosage: UNK, UNKNOWN
     Route: 065
     Dates: start: 201210
  28. DRISDOL [Concomitant]
     Indication: NEUROPATHY PERIPHERAL
     Dosage: UNK, UNKNOWN
     Route: 065
     Dates: start: 201210
  29. PROSCAR [Concomitant]
     Indication: URINARY RETENTION
     Dosage: UNK, UNKNOWN
     Route: 065
     Dates: start: 201208
  30. DUONEB [Concomitant]
     Indication: ASTHMA
     Dosage: UNK, UNKNOWN
     Route: 065
     Dates: start: 1992
  31. DIAZEPAM [Concomitant]
     Indication: ANXIETY
     Dosage: UNK, UNKNOWN
     Route: 065
     Dates: start: 1995
  32. AMBIEN [Concomitant]
     Indication: INSOMNIA
     Dosage: UNK, UNKNOWN
     Route: 065
     Dates: start: 2005
  33. OMEGA-3 FATTY ACIDS [Concomitant]
     Indication: CARDIAC FAILURE CONGESTIVE
     Dosage: UNK, UNKNOWN
     Route: 065
     Dates: start: 2010
  34. LIORESAL [Concomitant]
     Indication: BACK PAIN
     Dosage: UNK, UNKNOWN
     Route: 065
  35. ALDACTONE                          /00006201/ [Concomitant]
     Indication: CARDIAC FAILURE CONGESTIVE
     Dosage: UNK, UNKNOWN
     Route: 065
     Dates: end: 201301
  36. NEXIUM                             /01479302/ [Concomitant]
     Indication: PROPHYLAXIS
     Dosage: UNK, UNKNOWN
     Route: 065
  37. MOMETASONE [Concomitant]
     Indication: PRODUCT USED FOR UNKNOWN INDICATION
     Dosage: UNK, UNKNOWN
     Route: 065
  38. PROAIR                             /00139502/ [Concomitant]
     Indication: ASTHMA
     Dosage: UNK, UNKNOWN
     Route: 065
     Dates: start: 201201
  39. BACLOFEN [Concomitant]
     Indication: PRODUCT USED FOR UNKNOWN INDICATION
     Dosage: UNK, UNKNOWN
     Route: 065

REACTIONS (4)
  - Cardiac failure [Recovered/Resolved]
  - Overdose [Recovered/Resolved]
  - Haematuria [Unknown]
  - Treatment noncompliance [Unknown]
